FAERS Safety Report 10257359 (Version 1)
Quarter: 2014Q2

REPORT INFORMATION
  Report Type: Spontaneous
  Country: US (occurrence: None)
  Receive Date: 20140623
  Receipt Date: 20140623
  Transmission Date: 20141212
  Serious: No
  Sender: FDA-Public Use
  Company Number: None

PATIENT
  Age: 8 Month
  Sex: Male
  Weight: 9.53 kg

DRUGS (1)
  1. HYLANDS TEETHING TABLETS [Suspect]
     Indication: TEETHING
     Dosage: 2 TO 3 TABLETS FOUR TIMES DAILY
     Dates: start: 20140310, end: 20140520

REACTIONS (3)
  - Dyskinesia [None]
  - Poor quality drug administered [None]
  - Toxicity to various agents [None]
